FAERS Safety Report 10170451 (Version 1)
Quarter: 2014Q2

REPORT INFORMATION
  Report Type: Spontaneous
  Country: SE (occurrence: SE)
  Receive Date: 20140513
  Receipt Date: 20140513
  Transmission Date: 20141212
  Serious: Yes (Other)
  Sender: FDA-Public Use
  Company Number: SE-ACTAVIS-2014-09454

PATIENT
  Age: 48 Year
  Sex: Male

DRUGS (1)
  1. GABAPENTIN ACTAVIS [Suspect]
     Indication: PAIN
     Dosage: UNK, 300 MG X 2-3
     Route: 048
     Dates: start: 20130902, end: 20140424

REACTIONS (1)
  - Urticaria [Not Recovered/Not Resolved]
